FAERS Safety Report 18765827 (Version 4)
Quarter: 2021Q1

REPORT INFORMATION
  Report Type: Report from Study
  Country: None (occurrence: CA)
  Receive Date: 20210121
  Receipt Date: 20210222
  Transmission Date: 20210419
  Serious: Yes (Death, Hospitalization)
  Sender: FDA-Public Use
  Company Number: CA-ABBVIE-21K-028-3732592-00

PATIENT
  Age: 76 Year
  Sex: Female
  Weight: 45.4 kg

DRUGS (2)
  1. DUODOPA [Suspect]
     Active Substance: CARBIDOPA\LEVODOPA
  2. DUODOPA [Suspect]
     Active Substance: CARBIDOPA\LEVODOPA
     Indication: PARKINSON^S DISEASE
     Dosage: DUODOPA?LEVODOPA20MG/ML, CARBIDOPAMONOHYDRATE5MG/ML
     Route: 050
     Dates: start: 20180424

REACTIONS (10)
  - Moaning [Unknown]
  - Pain [Unknown]
  - Dementia [Unknown]
  - Feeding disorder [Fatal]
  - Incontinence [Unknown]
  - Stoma site discharge [Not Recovered/Not Resolved]
  - Fluid intake reduced [Fatal]
  - Hypophagia [Fatal]
  - Fatigue [Unknown]
  - Stoma site erythema [Not Recovered/Not Resolved]

NARRATIVE: CASE EVENT DATE: 20200107
